FAERS Safety Report 7028867-1 (Version None)
Quarter: 2010Q3

REPORT INFORMATION
  Report Type: 
  Country: None (occurrence: None)
  Receive Date: 20100907
  Receipt Date: 20100823
  Transmission Date: 20110219
  Serious: Yes (Death)
  Sender: FDA-Public Use
  Company Number: 2010PROUSA00042

PATIENT
  Age: 68 Year
  Sex: Male

DRUGS (3)
  1. PROVENGE [Suspect]
     Indication: PROSTATE CANCER METASTATIC
     Dosage: 250 ML, SINGLE, INTRAVENOUS
     Route: 042
     Dates: start: 20100816, end: 20100816
  2. TRAMADOL HCL [Concomitant]
  3. CRESTOR [Concomitant]

REACTIONS (3)
  - DIZZINESS [None]
  - THROMBOSIS [None]
  - UNRESPONSIVE TO STIMULI [None]
